FAERS Safety Report 17753751 (Version 1)
Quarter: 2020Q2

REPORT INFORMATION
  Report Type: Spontaneous
  Country: US (occurrence: US)
  Receive Date: 20200506
  Receipt Date: 20200506
  Transmission Date: 20200714
  Serious: No
  Sender: FDA-Public Use
  Company Number: US-ROCHE-2423545

PATIENT
  Age: 79 Year
  Sex: Male
  Weight: 86.26 kg

DRUGS (4)
  1. ESBRIET [Suspect]
     Active Substance: PIRFENIDONE
     Dosage: 2 PILLS
     Route: 048
     Dates: start: 20190915, end: 20190921
  2. ESBRIET [Suspect]
     Active Substance: PIRFENIDONE
     Dosage: 3 PILLS
     Route: 048
     Dates: start: 20190922
  3. ESBRIET [Suspect]
     Active Substance: PIRFENIDONE
     Indication: PULMONARY FIBROSIS
     Dosage: 1 PILLS
     Route: 048
     Dates: start: 20190908, end: 20190914
  4. ESBRIET [Suspect]
     Active Substance: PIRFENIDONE
     Dosage: 2 PILLS
     Route: 048
     Dates: start: 20190923

REACTIONS (2)
  - Headache [Recovered/Resolved]
  - Hypertension [Recovered/Resolved]

NARRATIVE: CASE EVENT DATE: 20190923
